FAERS Safety Report 12366554 (Version 1)
Quarter: 2016Q2

REPORT INFORMATION
  Report Type: Spontaneous
  Country: US (occurrence: US)
  Receive Date: 20160513
  Receipt Date: 20160513
  Transmission Date: 20160815
  Serious: Yes (Hospitalization)
  Sender: FDA-Public Use
  Company Number: US-SA-2016SA089866

PATIENT
  Age: 64 Year
  Sex: Female

DRUGS (4)
  1. HUMALOG [Concomitant]
     Active Substance: INSULIN LISPRO
  2. TOUJEO [Suspect]
     Active Substance: INSULIN GLARGINE
     Indication: TYPE 2 DIABETES MELLITUS
     Dosage: DOSE:50 UNIT(S)
     Route: 065
     Dates: start: 201604
  3. LANTUS [Suspect]
     Active Substance: INSULIN GLARGINE
     Route: 065
  4. SOLOSTAR [Concomitant]
     Active Substance: DEVICE
     Dates: start: 201604

REACTIONS (6)
  - Dehydration [Not Recovered/Not Resolved]
  - Platelet count decreased [Recovering/Resolving]
  - Blood calcium decreased [Recovering/Resolving]
  - Muscle twitching [Recovering/Resolving]
  - Renal disorder [Recovering/Resolving]
  - Gait disturbance [Recovering/Resolving]
